FAERS Safety Report 4407612-X (Version None)
Quarter: 2004Q3

REPORT INFORMATION
  Report Type: 
  Country: None (occurrence: None)
  Receive Date: 20040721
  Receipt Date: 20040706
  Transmission Date: 20050211
  Serious: Yes (Death)
  Sender: FDA-Public Use
  Company Number: 2004-DE-03753GD

PATIENT

DRUGS (2)
  1. ENALAPRIL MALEATE [Suspect]
  2. FUROSEMIDE [Suspect]

REACTIONS (1)
  - RENAL FAILURE [None]
